FAERS Safety Report 19885729 (Version 1)
Quarter: 2021Q3

REPORT INFORMATION
  Report Type: Other
  Country: US (occurrence: US)
  Receive Date: 20210927
  Receipt Date: 20210927
  Transmission Date: 20211014
  Serious: Yes (Hospitalization, Other)
  Sender: FDA-Public Use
  Company Number: US-ROCHE-2916041

PATIENT

DRUGS (2)
  1. RITUXIMAB. [Suspect]
     Active Substance: RITUXIMAB
     Indication: CHRONIC LYMPHOCYTIC LEUKAEMIA
     Route: 065
  2. RITUXIMAB. [Suspect]
     Active Substance: RITUXIMAB
     Indication: NON-HODGKIN^S LYMPHOMA

REACTIONS (16)
  - Fatigue [Unknown]
  - Anaemia [Unknown]
  - Constipation [Unknown]
  - Vomiting [Unknown]
  - Weight decreased [Unknown]
  - Neoplasm malignant [Unknown]
  - Diarrhoea [Unknown]
  - Neutropenia [Unknown]
  - Tumour lysis syndrome [Unknown]
  - Neutropenic sepsis [Unknown]
  - Decreased appetite [Unknown]
  - Infusion related reaction [Unknown]
  - Back pain [Unknown]
  - Pyrexia [Unknown]
  - Nausea [Unknown]
  - Neuropathy peripheral [Unknown]
